FAERS Safety Report 7331955-3 (Version None)
Quarter: 2011Q1

REPORT INFORMATION
  Report Type: 
  Country: None (occurrence: None)
  Receive Date: 20110304
  Receipt Date: 20110224
  Transmission Date: 20110831
  Serious: Yes (Hospitalization)
  Sender: FDA-Public Use
  Company Number: US-ELI_LILLY_AND_COMPANY-US201009003366

PATIENT
  Sex: Female
  Weight: 68.027 kg

DRUGS (28)
  1. ASPIRIN [Concomitant]
     Dosage: 81 MG, DAILY (1/D)
     Route: 048
  2. VITAMIN D [Concomitant]
     Indication: PROPHYLAXIS
     Dosage: 1000 IU, DAILY (1/D)
     Route: 048
     Dates: start: 20100819
  3. ZITHROMAX [Concomitant]
     Indication: PROPHYLAXIS
     Dosage: 500 MG, DAILY (1/D)
     Route: 048
     Dates: start: 20100815, end: 20100820
  4. VITAMIN B-12 [Concomitant]
     Indication: PROPHYLAXIS
     Dosage: 1000 UG, DAILY (1/D)
     Route: 048
     Dates: start: 20100818
  5. IMDUR [Concomitant]
     Indication: ANGINA PECTORIS
     Dosage: 60 MG, 2/D
     Route: 048
     Dates: start: 20100818
  6. SOLU-MEDROL [Concomitant]
     Indication: CHRONIC OBSTRUCTIVE PULMONARY DISEASE
     Dosage: 160 MG, 4/D
     Route: 042
     Dates: start: 20100815, end: 20100819
  7. SOLU-MEDROL [Concomitant]
     Dosage: 40 MG, DAILY (1/D)
     Route: 042
     Dates: start: 20100821, end: 20100823
  8. MUCOMYST [Concomitant]
     Indication: CHRONIC OBSTRUCTIVE PULMONARY DISEASE
     Dosage: 2400 MG, 4/D
     Route: 048
     Dates: start: 20100819, end: 20100819
  9. DEMEROL [Concomitant]
     Indication: PAIN
     Dosage: 25 MG, DAILY (1/D)
     Route: 048
     Dates: start: 20100819, end: 20100819
  10. PLAVIX [Concomitant]
     Dosage: 75 MG, DAILY (1/D)
     Dates: start: 20100820
  11. ASPIRIN [Concomitant]
     Indication: ANTIPLATELET THERAPY
     Dosage: 81 MG, DAILY (1/D)
     Route: 048
     Dates: start: 20100819, end: 20100819
  12. PROTONIX [Concomitant]
     Indication: PROPHYLAXIS
     Dosage: 40 MG, DAILY (1/D)
     Route: 048
     Dates: start: 20100817, end: 20100819
  13. TOPROL-XL [Concomitant]
     Indication: HYPERTENSION
     Dosage: 50 MG, OTHER
     Route: 048
     Dates: start: 20100817, end: 20100817
  14. VERSED [Concomitant]
     Indication: PROPHYLAXIS
     Dosage: 4 MG, OTHER
     Route: 042
     Dates: start: 20100819, end: 20100819
  15. NITROGLYCERIN [Concomitant]
     Indication: PROPHYLAXIS
     Dosage: 600 UG, OTHER
     Route: 042
     Dates: start: 20100819, end: 20100819
  16. CALAN [Concomitant]
     Dosage: 240 MG, 2/D
     Route: 048
     Dates: start: 20100818, end: 20100826
  17. ZOCOR [Concomitant]
     Indication: HYPERLIPIDAEMIA
     Dosage: 5 MG, DAILY (1/D)
     Route: 048
     Dates: start: 20100821
  18. PRASUGREL HYDROCHLORIDE [Suspect]
     Indication: ACUTE CORONARY SYNDROME
     Dosage: 10 MG, DAILY (1/D)
     Dates: start: 20100823
  19. ASPIRIN [Concomitant]
     Indication: ANTICOAGULANT THERAPY
     Dosage: 325 MG, DAILY (1/D)
     Dates: start: 20100820
  20. ASPIRIN [Concomitant]
     Dosage: 325 MG, DAILY (1/D)
     Route: 048
     Dates: start: 20100820
  21. CALAN [Concomitant]
     Indication: HYPERTENSION
     Dosage: 5 MG, OTHER
     Route: 042
     Dates: start: 20100817, end: 20100817
  22. CALAN [Concomitant]
     Dosage: 240 MG, 3/D
     Route: 048
     Dates: start: 20100816, end: 20100817
  23. CALAN [Concomitant]
     Dosage: 120 MG, DAILY (1/D)
     Route: 048
     Dates: start: 20100827
  24. FOLATE [Concomitant]
     Indication: PROPHYLAXIS
     Dosage: 1 MG, DAILY (1/D)
     Route: 048
     Dates: start: 20100818
  25. PROTONIX [Concomitant]
     Dosage: 40 MG, DAILY (1/D)
     Route: 048
     Dates: start: 20100823, end: 20100823
  26. CALAN [Concomitant]
     Dosage: 320 MG, 4/D
     Route: 048
     Dates: start: 20100817, end: 20100818
  27. PULMICORT RESPULES [Concomitant]
     Indication: CHRONIC OBSTRUCTIVE PULMONARY DISEASE
     Dosage: 1 MG, 2/D
     Route: 048
     Dates: start: 20100816, end: 20100826
  28. ANGIOMAX [Concomitant]
     Indication: ANTICOAGULANT THERAPY
     Dosage: 129.5 MG, OTHER
     Route: 042
     Dates: start: 20100819, end: 20100819

REACTIONS (2)
  - TRANSIENT ISCHAEMIC ATTACK [None]
  - MYOCARDIAL INFARCTION [None]
